FAERS Safety Report 5752886-6 (Version None)
Quarter: 2008Q2

REPORT INFORMATION
  Report Type: 
  Country: None (occurrence: None)
  Receive Date: 20080529
  Receipt Date: 20080501
  Transmission Date: 20081010
  Serious: No
  Sender: FDA-Public Use
  Company Number: US-BOEHRINGER INGELHEIM GMBH, GERMANY-2008-BP-06986BP

PATIENT
  Age: 65 Year
  Sex: Male

DRUGS (1)
  1. FLOMAX [Suspect]

REACTIONS (4)
  - ERUCTATION [None]
  - FLATULENCE [None]
  - PAIN [None]
  - STOMACH DISCOMFORT [None]
